FAERS Safety Report 6432343-4 (Version None)
Quarter: 2009Q4

REPORT INFORMATION
  Report Type: 
  Country: None (occurrence: None)
  Receive Date: 20091109
  Receipt Date: 20091009
  Transmission Date: 20100525
  Serious: No
  Sender: FDA-Public Use
  Company Number: US-BAYER-200927814NA

PATIENT
  Age: 42 Year
  Sex: Female

DRUGS (3)
  1. MIRENA [Suspect]
     Indication: CONTRACEPTION
     Dosage: CONTINUOUS
     Route: 015
     Dates: start: 20060701
  2. MIRENA [Suspect]
     Dosage: CONTINUOUS
     Route: 015
     Dates: start: 20090801
  3. ESTROGEN [Concomitant]

REACTIONS (6)
  - ABDOMINAL PAIN [None]
  - CONTUSION [None]
  - MEDICAL DEVICE COMPLICATION [None]
  - MUSCULOSKELETAL DISCOMFORT [None]
  - UTERINE ATROPHY [None]
  - UTERINE CONTRACTIONS ABNORMAL [None]
